FAERS Safety Report 10253083 (Version 1)
Quarter: 2014Q2

REPORT INFORMATION
  Report Type: Spontaneous
  Country: US (occurrence: None)
  Receive Date: 20140619
  Receipt Date: 20140619
  Transmission Date: 20141212
  Serious: Yes (Death)
  Sender: FDA-Public Use
  Company Number: None

PATIENT
  Sex: Female
  Weight: 48.08 kg

DRUGS (1)
  1. DEPO PROVERA [Suspect]
     Indication: CONTRACEPTION
     Dosage: 150MG 9 12-13 WKS IM
     Route: 030
     Dates: start: 20130925, end: 20140313

REACTIONS (3)
  - Pregnancy with injectable contraceptive [None]
  - Exposure during pregnancy [None]
  - Placental disorder [None]
